FAERS Safety Report 4864352-0 (Version None)
Quarter: 2005Q4

REPORT INFORMATION
  Report Type: 
  Country: None (occurrence: None)
  Receive Date: 20051222
  Receipt Date: 20051208
  Transmission Date: 20060501
  Serious: Yes (Hospitalization)
  Sender: FDA-Public Use
  Company Number: CN-MERCK-0512CHN00013

PATIENT
  Age: 50 Year
  Sex: Female

DRUGS (3)
  1. COZAAR [Suspect]
     Indication: HYPERTENSION
     Route: 048
     Dates: start: 19990101, end: 20051001
  2. COZAAR [Suspect]
     Route: 048
     Dates: start: 20051001
  3. INSULIN [Concomitant]
     Indication: DIABETES MELLITUS INSULIN-DEPENDENT
     Route: 058
     Dates: start: 19780101

REACTIONS (2)
  - HYPERLIPIDAEMIA [None]
  - RENAL FAILURE [None]
